FAERS Safety Report 18314164 (Version 2)
Quarter: 2020Q4

REPORT INFORMATION
  Report Type: Report from Study
  Country: US (occurrence: US)
  Receive Date: 20200925
  Receipt Date: 20201222
  Transmission Date: 20210113
  Serious: Yes (Hospitalization, Other)
  Sender: FDA-Public Use
  Company Number: US-JNJFOC-A-NJ2020-204009

PATIENT
  Age: 60 Year
  Sex: Female
  Weight: 145.13 kg

DRUGS (14)
  1. SILDENAFIL. [Concomitant]
     Active Substance: SILDENAFIL
  2. CEFUROXIME. [Concomitant]
     Active Substance: CEFUROXIME
  3. METFORMIN [Concomitant]
     Active Substance: METFORMIN HYDROCHLORIDE
  4. HUMALOG [Concomitant]
     Active Substance: INSULIN LISPRO
  5. NOVOLOG [Concomitant]
     Active Substance: INSULIN ASPART
  6. PRAMIPEXOLE. [Concomitant]
     Active Substance: PRAMIPEXOLE
  7. ATORVASTATIN [Concomitant]
     Active Substance: ATORVASTATIN
  8. VITAMIN D [Concomitant]
     Active Substance: VITAMIN D NOS
  9. LANTUS [Concomitant]
     Active Substance: INSULIN GLARGINE
  10. OPSUMIT [Suspect]
     Active Substance: MACITENTAN
     Indication: PULMONARY ARTERIAL HYPERTENSION
     Dosage: 10 MG, QD
     Route: 048
     Dates: start: 20200320
  11. ASPIRIN. [Concomitant]
     Active Substance: ASPIRIN
  12. AXETIL [Concomitant]
     Active Substance: CEFUROXIME AXETIL
  13. GABAPENTIN. [Concomitant]
     Active Substance: GABAPENTIN
  14. FUROSEMIDE. [Concomitant]
     Active Substance: FUROSEMIDE
     Dosage: 20 MG

REACTIONS (10)
  - Heart rate increased [Unknown]
  - Oropharyngeal pain [Not Recovered/Not Resolved]
  - Product dose omission issue [Recovered/Resolved]
  - Nasal congestion [Not Recovered/Not Resolved]
  - Pancreatic carcinoma [Unknown]
  - Dyspnoea exertional [Not Recovered/Not Resolved]
  - Fatigue [Unknown]
  - Dyspnoea [Unknown]
  - Hospitalisation [Unknown]
  - Peripheral swelling [Not Recovered/Not Resolved]

NARRATIVE: CASE EVENT DATE: 202003
